FAERS Safety Report 9886500 (Version 1)
Quarter: 2014Q1

REPORT INFORMATION
  Report Type: Report from Study
  Country: BR (occurrence: BR)
  Receive Date: 20140210
  Receipt Date: 20140210
  Transmission Date: 20141002
  Serious: Yes (Death, Other)
  Sender: FDA-Public Use
  Company Number: PHHY2014BR015555

PATIENT
  Sex: Female
  Weight: 53 kg

DRUGS (1)
  1. DIOVAN HCT [Suspect]
     Indication: HYPERTENSION
     Dosage: 1 DF (VALS 160 MG / HYDR 12.5 MG), A DAY IN THE MORNING
     Route: 048

REACTIONS (3)
  - Volvulus [Fatal]
  - Intestinal perforation [Fatal]
  - Ascites [Unknown]
